FAERS Safety Report 13175444 (Version 4)
Quarter: 2017Q1

REPORT INFORMATION
  Report Type: Spontaneous
  Country: US (occurrence: US)
  Receive Date: 20170201
  Receipt Date: 20170301
  Transmission Date: 20170428
  Serious: No
  Sender: FDA-Public Use
  Company Number: US-PFIZER INC-2017036901

PATIENT
  Age: 65 Year
  Sex: Female
  Weight: 59 kg

DRUGS (1)
  1. FLECTOR [Suspect]
     Active Substance: DICLOFENAC EPOLAMINE
     Indication: PAIN
     Dosage: 1 DF, 2X/DAY
     Route: 062
     Dates: start: 20170118

REACTIONS (1)
  - Drug ineffective [Unknown]
